FAERS Safety Report 9920454 (Version 1)
Quarter: 2014Q1

REPORT INFORMATION
  Report Type: Spontaneous
  Country: US (occurrence: US)
  Receive Date: 20140224
  Receipt Date: 20140224
  Transmission Date: 20141002
  Serious: No
  Sender: FDA-Public Use
  Company Number: US-NOVEN-13US008115

PATIENT
  Sex: Female

DRUGS (3)
  1. MINIVELLE [Suspect]
     Indication: HYSTERECTOMY
     Dosage: 0.05 MG/DAY, 2/WK
     Route: 062
     Dates: start: 2013
  2. MINIVELLE [Suspect]
     Indication: NIGHT SWEATS
     Dosage: 0.1 MG/DAY, 2/WEEK;Y
     Route: 062
  3. MINIVELLE [Suspect]
     Indication: MIGRAINE

REACTIONS (6)
  - Night sweats [Recovered/Resolved]
  - Migraine [Recovered/Resolved]
  - Weight increased [Not Recovered/Not Resolved]
  - Insomnia [Recovered/Resolved]
  - Off label use [Not Recovered/Not Resolved]
  - Wrong technique in drug usage process [Not Recovered/Not Resolved]
